FAERS Safety Report 26199984 (Version 1)
Quarter: 2025Q4

REPORT INFORMATION
  Report Type: Report from Study
  Country: US (occurrence: US)
  Receive Date: 20251225
  Receipt Date: 20251225
  Transmission Date: 20260118
  Serious: Yes (Other)
  Sender: ALEXION PHARMACEUTICALS
  Company Number: US-AstraZeneca-CH-01017803A

PATIENT
  Age: 65 Year
  Sex: Female
  Weight: 108.4 kg

DRUGS (10)
  1. TEZEPELUMAB [Suspect]
     Active Substance: TEZEPELUMAB
     Indication: Asthma
     Dosage: 210 MILLIGRAM, Q4W
  2. TEZEPELUMAB [Suspect]
     Active Substance: TEZEPELUMAB
  3. PREDNISONE [Concomitant]
     Active Substance: PREDNISONE
     Route: 065
  4. BENZONATATE [Concomitant]
     Active Substance: BENZONATATE
  5. BISOPROLOL [Concomitant]
     Active Substance: BISOPROLOL
  6. FLUTICASONE [Concomitant]
     Active Substance: FLUTICASONE
  7. MONTELUKAST [Concomitant]
     Active Substance: MONTELUKAST
  8. NARATRIPTAN [Concomitant]
     Active Substance: NARATRIPTAN HYDROCHLORIDE
  9. PITAVASTATIN [Concomitant]
     Active Substance: PITAVASTATIN
  10. TAGAMET [Concomitant]
     Active Substance: CIMETIDINE

REACTIONS (15)
  - Oral candidiasis [Unknown]
  - Cough [Unknown]
  - Back pain [Unknown]
  - Pain in extremity [Unknown]
  - Rhinitis allergic [Unknown]
  - Chronic sinusitis [Unknown]
  - Oesophageal candidiasis [Unknown]
  - Dysphagia [Unknown]
  - Eosinophilia [Unknown]
  - Gastrooesophageal reflux disease [Unknown]
  - Obesity [Unknown]
  - Pustular psoriasis [Unknown]
  - Lung infiltration [Unknown]
  - Tachycardia [Unknown]
  - Sleep apnoea syndrome [Unknown]
